FAERS Safety Report 7249520-5 (Version None)
Quarter: 2011Q1

REPORT INFORMATION
  Report Type: 
  Country: None (occurrence: None)
  Receive Date: 20110128
  Receipt Date: 20101207
  Transmission Date: 20110831
  Serious: Yes (Hospitalization, Other)
  Sender: FDA-Public Use
  Company Number: US-BAYER-201024043NA

PATIENT
  Sex: Female
  Weight: 68.027 kg

DRUGS (9)
  1. YAZ [Suspect]
     Dosage: UNK
     Route: 048
     Dates: start: 20061216, end: 20070305
  2. ADVIL [Concomitant]
     Indication: HEADACHE
  3. FLUCONAZOLE [Concomitant]
     Dosage: 150 MG, UNK
     Route: 048
     Dates: start: 20080116
  4. YAZ [Suspect]
     Indication: ACNE
     Dosage: UNK
     Route: 048
     Dates: start: 20080116, end: 20080901
  5. NAPROXEN [Concomitant]
     Indication: HEADACHE
  6. PHENOBARBITAL [Concomitant]
     Indication: CONVULSION
     Dosage: UNK
     Dates: start: 20030401
  7. MULTIVITAMIN [Concomitant]
  8. DOXYCYCLINE HYCLATE [Concomitant]
     Dosage: 100 MG, UNK
     Route: 048
     Dates: start: 20080510
  9. YASMIN [Suspect]
     Indication: ACNE
     Dosage: UNK
     Route: 048

REACTIONS (6)
  - BACK PAIN [None]
  - OEDEMA PERIPHERAL [None]
  - PAIN [None]
  - MUSCULOSKELETAL STIFFNESS [None]
  - INJURY [None]
  - DEEP VEIN THROMBOSIS [None]
